FAERS Safety Report 4965013-X (Version None)
Quarter: 2006Q1

REPORT INFORMATION
  Report Type: 
  Country: None (occurrence: None)
  Receive Date: 20060130
  Receipt Date: 20051007
  Transmission Date: 20060701
  Serious: No
  Sender: FDA-Public Use
  Company Number: COT_0225_2005

PATIENT
  Age: 25 Year
  Sex: Female
  Weight: 100 kg

DRUGS (2)
  1. VENTAVIS [Suspect]
     Indication: PULMONARY HYPERTENSION
     Dosage: 5 MCG 9XD IH
     Dates: start: 20051004
  2. HEPARIN [Suspect]

REACTIONS (3)
  - BRONCHOSPASM [None]
  - HEPARIN-INDUCED THROMBOCYTOPENIA [None]
  - WHEEZING [None]
